FAERS Safety Report 4304949-X (Version None)
Quarter: 2004Q1

REPORT INFORMATION
  Report Type: 
  Country: None (occurrence: None)
  Receive Date: 20040223
  Receipt Date: 20030701
  Transmission Date: 20041129
  Serious: No
  Sender: FDA-Public Use
  Company Number: TAP2003Q01607

PATIENT
  Sex: Male

DRUGS (4)
  1. LUPRON DEPOT-4 [Suspect]
     Indication: PROSTATE CANCER
     Dosage: 30 MG, 1 IN 4 M, UNKNOWN
     Dates: start: 20021001, end: 20030601
  2. ALLOPURINOL [Concomitant]
  3. PROTONIX [Concomitant]
  4. UNIVASC [Concomitant]

REACTIONS (5)
  - INJECTION SITE ABSCESS [None]
  - INJECTION SITE HAEMORRHAGE [None]
  - INJECTION SITE NODULE [None]
  - INJECTION SITE RASH [None]
  - RASH GENERALISED [None]
